FAERS Safety Report 22102611 (Version 2)
Quarter: 2024Q1

REPORT INFORMATION
  Report Type: Spontaneous
  Country: US (occurrence: US)
  Receive Date: 20230316
  Receipt Date: 20240220
  Transmission Date: 20240410
  Serious: Yes (Other)
  Sender: FDA-Public Use
  Company Number: US-ABBVIE-4338366

PATIENT
  Sex: Male

DRUGS (4)
  1. HUMIRA [Suspect]
     Active Substance: ADALIMUMAB
     Indication: Ankylosing spondylitis
     Dosage: UNKNOWN
     Route: 058
     Dates: start: 2021, end: 2022
  2. HUMIRA [Suspect]
     Active Substance: ADALIMUMAB
     Route: 058
     Dates: start: 2018, end: 2019
  3. HUMIRA [Suspect]
     Active Substance: ADALIMUMAB
     Route: 058
  4. CANNABIS SATIVA SUBSP. INDICA TOP [Concomitant]
     Active Substance: CANNABIS SATIVA SUBSP. INDICA TOP
     Indication: Crohn^s disease

REACTIONS (10)
  - Suicidal ideation [Recovering/Resolving]
  - Crohn^s disease [Not Recovered/Not Resolved]
  - Arthralgia [Not Recovered/Not Resolved]
  - Stress [Recovering/Resolving]
  - Back pain [Not Recovered/Not Resolved]
  - Trigger finger [Not Recovered/Not Resolved]
  - Suicide attempt [Recovered/Resolved]
  - Unevaluable event [Unknown]
  - Emotional distress [Unknown]
  - Anger [Unknown]

NARRATIVE: CASE EVENT DATE: 20190101
